FAERS Safety Report 21047131 (Version 2)
Quarter: 2022Q3

REPORT INFORMATION
  Report Type: Spontaneous
  Country: US (occurrence: US)
  Receive Date: 20220706
  Receipt Date: 20220728
  Transmission Date: 20221026
  Serious: No
  Sender: FDA-Public Use
  Company Number: US-009507513-2206USA006658

PATIENT
  Age: 31 Year
  Sex: Female

DRUGS (4)
  1. KEYTRUDA [Suspect]
     Active Substance: PEMBROLIZUMAB
     Indication: Triple negative breast cancer
     Dosage: 200 MILLIGRAM, Q3W
     Route: 042
     Dates: start: 20210908, end: 20220608
  2. ADRIAMYCIN [Suspect]
     Active Substance: DOXORUBICIN HYDROCHLORIDE
     Indication: Triple negative breast cancer
  3. CYTOXAN [Suspect]
     Active Substance: CYCLOPHOSPHAMIDE
     Indication: Triple negative breast cancer
  4. TAXOL [Suspect]
     Active Substance: PACLITAXEL
     Indication: Triple negative breast cancer

REACTIONS (2)
  - Maternal exposure during pregnancy [Unknown]
  - No adverse event [Unknown]
